FAERS Safety Report 9768332 (Version 1)
Quarter: 2013Q4

REPORT INFORMATION
  Report Type: Spontaneous
  Country: DK (occurrence: AU)
  Receive Date: 20131217
  Receipt Date: 20131217
  Transmission Date: 20140711
  Serious: Yes (Hospitalization)
  Sender: FDA-Public Use
  Company Number: AU-FRI-1000052288

PATIENT
  Age: 71 Year
  Sex: Male

DRUGS (3)
  1. ESCITALOPRAM [Suspect]
     Dosage: 15 MG
  2. PROGOUT [Concomitant]
     Dosage: 300 MG
  3. TEMAZE [Concomitant]
     Dosage: 10 MG

REACTIONS (1)
  - Convulsion [Unknown]
